FAERS Safety Report 21410940 (Version 1)
Quarter: 2022Q4

REPORT INFORMATION
  Report Type: Spontaneous
  Country: US (occurrence: None)
  Receive Date: 20221004
  Receipt Date: 20221004
  Transmission Date: 20230113
  Serious: Yes (Hospitalization)
  Sender: FDA-Public Use
  Company Number: None

PATIENT
  Age: 66 Year
  Sex: Female
  Weight: 72 kg

DRUGS (6)
  1. BUSPIRONE HYDROCHLORIDE [Suspect]
     Active Substance: BUSPIRONE HYDROCHLORIDE
     Indication: Anxiety
     Dosage: FREQUENCY : 3 TIMES A DAY;?
     Route: 048
     Dates: start: 20220926, end: 20220926
  2. GABAPENTIN [Concomitant]
     Active Substance: GABAPENTIN
  3. HYDROCHLOROTHIAZIDE [Concomitant]
     Active Substance: HYDROCHLOROTHIAZIDE
  4. GUAIFENESIN [Concomitant]
     Active Substance: GUAIFENESIN
  5. VITAMINS [Concomitant]
     Active Substance: VITAMINS
  6. mineral supplement [Concomitant]

REACTIONS (7)
  - Drug interaction [None]
  - Vomiting [None]
  - Diarrhoea [None]
  - Tinnitus [None]
  - Dizziness [None]
  - Heart rate increased [None]
  - Depression [None]

NARRATIVE: CASE EVENT DATE: 20220926
